FAERS Safety Report 5818795-9 (Version None)
Quarter: 2008Q3

REPORT INFORMATION
  Report Type: 
  Country: None (occurrence: None)
  Receive Date: 20080723
  Receipt Date: 20080714
  Transmission Date: 20090109
  Serious: Yes (Death)
  Sender: FDA-Public Use
  Company Number: US-JNJFOC-20080202470

PATIENT
  Sex: Male
  Weight: 82.56 kg

DRUGS (8)
  1. DURAGESIC-100 [Suspect]
     Route: 062
  2. DURAGESIC-100 [Suspect]
     Indication: PAIN
     Route: 062
  3. HYDROCODONE BITARTRATE AND ACETAMINOPHEN [Suspect]
     Indication: PAIN
  4. BENZONATATE [Concomitant]
     Indication: COUGH
  5. PAROXETINE HCL [Concomitant]
     Indication: ANXIETY
  6. DIAZEPAM [Concomitant]
     Indication: ANXIETY
  7. LEVAQUIN [Concomitant]
     Indication: UPPER RESPIRATORY TRACT INFECTION
  8. TRAZODONE HCL [Concomitant]
     Indication: INSOMNIA

REACTIONS (2)
  - DEVICE LEAKAGE [None]
  - MULTIPLE DRUG OVERDOSE [None]
